FAERS Safety Report 6516637-X (Version None)
Quarter: 2009Q4

REPORT INFORMATION
  Report Type: 
  Country: None (occurrence: None)
  Receive Date: 20091223
  Receipt Date: 20091211
  Transmission Date: 20100525
  Serious: Yes (Other)
  Sender: FDA-Public Use
  Company Number: DE-GENENTECH-295668

PATIENT
  Sex: Male
  Weight: 82 kg

DRUGS (5)
  1. MABTHERA [Suspect]
     Indication: DIFFUSE LARGE B-CELL LYMPHOMA
     Dosage: 375 MG/M2, Q3W
     Route: 042
     Dates: start: 20090728, end: 20090909
  2. CYCLOPHOSPHAMIDE [Concomitant]
     Indication: DIFFUSE LARGE B-CELL LYMPHOMA
     Dosage: 750 MG/M2, Q3W
     Route: 042
     Dates: start: 20090729, end: 20090910
  3. ADRIBLASTIN [Concomitant]
     Indication: DIFFUSE LARGE B-CELL LYMPHOMA
     Dosage: 50 MG, Q3W
     Route: 042
     Dates: start: 20090729, end: 20090910
  4. VINCRISTINE [Concomitant]
     Indication: DIFFUSE LARGE B-CELL LYMPHOMA
     Dosage: 2 MG, Q3W
     Route: 042
     Dates: start: 20090729, end: 20090910
  5. PREDNISONE [Concomitant]
     Indication: DIFFUSE LARGE B-CELL LYMPHOMA
     Dosage: 100 MG, DAYS 1-5
     Route: 048
     Dates: start: 20090729, end: 20090910

REACTIONS (1)
  - LYMPHADENITIS [None]
